FAERS Safety Report 10227449 (Version 1)
Quarter: 2014Q2

REPORT INFORMATION
  Report Type: Spontaneous
  Country: US (occurrence: US)
  Receive Date: 20140610
  Receipt Date: 20140610
  Transmission Date: 20141212
  Serious: No
  Sender: FDA-Public Use
  Company Number: US-PFIZER INC-2014154147

PATIENT
  Age: 62 Year
  Sex: Female

DRUGS (15)
  1. DOXYCYCLINE HYCLATE [Suspect]
     Dosage: UNK
  2. OXYCODONE [Suspect]
     Dosage: UNK
  3. HYDROXYZINE PAMOATE [Suspect]
     Dosage: UNK
  4. DARVOCET [Suspect]
     Dosage: UNK
  5. ULTRAM [Suspect]
     Dosage: UNK
  6. ULTRACET [Suspect]
     Dosage: UNK
  7. CODEINE [Suspect]
     Dosage: UNK
  8. LEVAQUIN [Suspect]
     Dosage: UNK
  9. DARVON [Suspect]
     Dosage: UNK
  10. BIAXIN [Suspect]
  11. TOPAMAX [Suspect]
     Dosage: UNK
  12. HYDROCODONE [Suspect]
     Dosage: UNK
  13. MACROBID [Suspect]
     Dosage: UNK
  14. PERCOCET [Suspect]
     Dosage: UNK
  15. ELAVIL [Suspect]
     Dosage: UNK

REACTIONS (1)
  - Drug hypersensitivity [Unknown]
